FAERS Safety Report 4320499-9 (Version None)
Quarter: 2004Q1

REPORT INFORMATION
  Report Type: 
  Country: None (occurrence: None)
  Receive Date: 20040319
  Receipt Date: 20040319
  Transmission Date: 20041129
  Serious: Yes (Other)
  Sender: FDA-Public Use
  Company Number: None

PATIENT
  Age: 29 Year
  Sex: Female
  Weight: 81.6475 kg

DRUGS (2)
  1. MYCOPHENOLATE MOFETIL 250MG ROCHE [Suspect]
     Indication: SYSTEMIC LUPUS ERYTHEMATOSUS
     Dosage: 500 MG BID ORAL
     Route: 048
     Dates: start: 20020801, end: 20040318
  2. PREDNISONE [Concomitant]

REACTIONS (1)
  - HERPES ZOSTER [None]
